FAERS Safety Report 5662574-2 (Version None)
Quarter: 2008Q1

REPORT INFORMATION
  Report Type: 
  Country: None (occurrence: None)
  Receive Date: 20080313
  Receipt Date: 20080313
  Transmission Date: 20080703
  Serious: Yes (Death, Life-Threatening, Hospitalization)
  Sender: FDA-Public Use
  Company Number: None

PATIENT
  Age: 78 Year
  Sex: Female
  Weight: 58.9676 kg

DRUGS (2)
  1. HEPARIN [Suspect]
     Indication: AORTIC VALVE REPAIR
     Dosage: HEPARIN- 54,000 UNITS AT SURGE
     Route: 040
     Dates: start: 20070318, end: 20070323
  2. TRYSALOL ? ? [Suspect]
     Indication: AORTIC VALVE REPAIR
     Dosage: TRYSALOL IV BOLUS
     Route: 040
     Dates: start: 20070323, end: 20070323

REACTIONS (7)
  - DYSPNOEA [None]
  - GENERAL PHYSICAL HEALTH DETERIORATION [None]
  - HYPERSENSITIVITY [None]
  - MULTI-ORGAN FAILURE [None]
  - PROCEDURAL COMPLICATION [None]
  - PROCEDURAL HYPOTENSION [None]
  - RENAL FAILURE [None]
